FAERS Safety Report 11209000 (Version 1)
Quarter: 2015Q2

REPORT INFORMATION
  Report Type: Spontaneous
  Country: DK (occurrence: DK)
  Receive Date: 20150622
  Receipt Date: 20150622
  Transmission Date: 20150821
  Serious: Yes (Disabling)
  Sender: FDA-Public Use
  Company Number: DK-ROCHE-1593383

PATIENT
  Age: 63 Year
  Sex: Female
  Weight: 80 kg

DRUGS (4)
  1. NAVELBINE [Suspect]
     Active Substance: VINORELBINE TARTRATE
     Indication: BREAST CANCER METASTATIC
     Dosage: DOSIS/STYRKE: TABLET 100 MG., 1,60 MG. I.V. X2 OG 45 MG. I.V. X1.?07/APR/2015
     Route: 042
     Dates: start: 20150209
  2. PERJETA [Suspect]
     Active Substance: PERTUZUMAB
     Indication: BREAST CANCER METASTATIC
     Dosage: DOSIS: 840 MG. X1, 420 MG. X2.?MOST RECENT DOSE ON : 07/APR/2015
     Route: 042
     Dates: start: 20150209
  3. HERCEPTIN [Suspect]
     Active Substance: TRASTUZUMAB
     Indication: BREAST CANCER METASTATIC
     Dosage: DOSIS: 600MG OG 470 MG , STYRKE: 6 MG/KG OG 8 MG/KG?MOST RECENT DOSE ON : 07/APR/2015
     Route: 042
     Dates: start: 20150209
  4. ELTROXIN [Concomitant]
     Active Substance: LEVOTHYROXINE
     Indication: THYROIDECTOMY
     Route: 065
     Dates: start: 20130524

REACTIONS (1)
  - Deafness bilateral [Not Recovered/Not Resolved]

NARRATIVE: CASE EVENT DATE: 20150410
